FAERS Safety Report 15781891 (Version 13)
Quarter: 2020Q3

REPORT INFORMATION
  Report Type: Spontaneous
  Country: FR (occurrence: FR)
  Receive Date: 20190102
  Receipt Date: 20200903
  Transmission Date: 20201102
  Serious: Yes (Hospitalization, Other)
  Sender: FDA-Public Use
  Company Number: FR-PFIZER INC-2018521936

PATIENT
  Age: 4 Day
  Sex: Male
  Weight: 2 kg

DRUGS (27)
  1. BLEOMYCIN [Interacting]
     Active Substance: BLEOMYCIN SULFATE
     Indication: HODGKIN^S DISEASE
     Dosage: 10 MG/M2
     Route: 064
  2. DEXAMETHASONE. [Concomitant]
     Active Substance: DEXAMETHASONE
     Indication: PROPHYLAXIS OF NAUSEA AND VOMITING
     Dosage: 10 MG
     Route: 064
  3. ONDANSETRON [Concomitant]
     Active Substance: ONDANSETRON
     Indication: PROPHYLAXIS OF NAUSEA AND VOMITING
     Dosage: 8 MG, 2X/DAY (NO DILUTION)
     Route: 064
  4. PREDNISONE. [Concomitant]
     Active Substance: PREDNISONE
     Indication: HODGKIN^S DISEASE
     Dosage: 80 MG, DAILY
  5. PREDNISONE. [Concomitant]
     Active Substance: PREDNISONE
     Dosage: 40 MG, DAILY
  6. BLEOMYCIN [Interacting]
     Active Substance: BLEOMYCIN SULFATE
     Indication: HODGKIN^S DISEASE STAGE II
     Dosage: 19.2 MG, CYCLIC (AT DAY 1 AND 15 OF A 28?DAY CYCLE)
     Route: 064
  7. PREDNISONE. [Concomitant]
     Active Substance: PREDNISONE
     Dosage: 40 MG, DAILY (FROM THE DIAGNOSIS UNTIL 1 WEEK AFTER THE FIRST ABVD)
  8. ENOXAPARIN [Concomitant]
     Active Substance: ENOXAPARIN
     Dosage: UNK, 2X/DAY (4000 UI TWICE A DAY)
  9. VINBLASTINE [Interacting]
     Active Substance: VINBLASTINE
     Dosage: 10 MG
     Route: 064
  10. VINBLASTINE [Interacting]
     Active Substance: VINBLASTINE
     Dosage: 5 MG/M2
     Route: 064
     Dates: start: 20171108
  11. DACARBAZINE. [Interacting]
     Active Substance: DACARBAZINE
     Dosage: 375 MG/M2
     Route: 064
     Dates: start: 20171108
  12. AMOXICILLIN. [Concomitant]
     Active Substance: AMOXICILLIN
     Indication: MATERNAL THERAPY TO ENHANCE FOETAL LUNG MATURITY
     Dosage: UNK
  13. SODIUM CHLORIDE 0.9% [Concomitant]
     Active Substance: SODIUM CHLORIDE
     Dosage: 20 ML
     Route: 064
  14. DOXORUBICIN HCL [Suspect]
     Active Substance: DOXORUBICIN HYDROCHLORIDE
     Indication: HODGKIN^S DISEASE STAGE II
     Dosage: 48 MG, CYCLIC (AT DAY 1 AND 15 OF A 28?DAY CYCLE)
     Route: 064
  15. DACARBAZINE. [Interacting]
     Active Substance: DACARBAZINE
     Indication: HODGKIN^S DISEASE
     Dosage: 375 MG/M2  (TOTAL DOSE 750 MG, VEHICLE: GLUCOSE 5% 250 ML, BAG, 45 MIN DURATION)
     Route: 064
  16. GLUCOSE [Concomitant]
     Active Substance: DEXTROSE
     Dosage: 250 ML
     Route: 064
  17. DACARBAZINE. [Interacting]
     Active Substance: DACARBAZINE
     Indication: HODGKIN^S DISEASE STAGE II
     Dosage: 730 MG, CYCLIC (AT DAY 1 AND 15 OF A 28?DAY CYCLE)
     Route: 064
     Dates: start: 20171108
  18. VINBLASTINE [Interacting]
     Active Substance: VINBLASTINE
     Indication: HODGKIN^S DISEASE
     Dosage: 6 MG/M2 (TOTAL DOSE 10 MG; VEHICLE: SODIUM CHLORIDE 0.9% 20 ML; BAG, 5 MIN DURATION)
     Route: 064
  19. DEXAMETHASONE. [Concomitant]
     Active Substance: DEXAMETHASONE
     Dosage: 10 MG
     Route: 064
  20. VALACICLOVIR [Concomitant]
     Active Substance: VALACYCLOVIR HYDROCHLORIDE
     Dosage: 500 MG, 1X/DAY
  21. GLUCOSE [Concomitant]
     Active Substance: DEXTROSE
     Indication: VEHICLE SOLUTION USE
     Dosage: 20 ML
     Route: 064
  22. DOXORUBICIN HCL [Interacting]
     Active Substance: DOXORUBICIN HYDROCHLORIDE
     Indication: HODGKIN^S DISEASE
     Dosage: 25 MG/M2 (25 MG/M2 (TOTAL DOSE 50 MG; VEHICLE: GLUCOSE 5% 20 ML; SYRINGE, 5 MIN DURATION))
     Route: 064
  23. BLEOMYCIN [Interacting]
     Active Substance: BLEOMYCIN SULFATE
     Dosage: 10 MG/M2
     Route: 064
     Dates: start: 20171108
  24. LANSOPRAZOLE. [Concomitant]
     Active Substance: LANSOPRAZOLE
     Dosage: UNK
  25. SODIUM CHLORIDE 0.9% [Concomitant]
     Active Substance: SODIUM CHLORIDE
     Indication: VEHICLE SOLUTION USE
     Dosage: 20 ML
     Route: 064
  26. VINBLASTINE [Interacting]
     Active Substance: VINBLASTINE
     Indication: HODGKIN^S DISEASE STAGE II
     Dosage: 10 MG, CYCLIC (AT DAY 1 AND 15 OF A 28?DAY CYCLE)
     Route: 064
  27. BLEOMYCIN [Interacting]
     Active Substance: BLEOMYCIN SULFATE
     Dosage: 19.2 MG
     Route: 064

REACTIONS (7)
  - Drug interaction [Recovered/Resolved]
  - Cardiotoxicity [Recovered/Resolved]
  - Troponin increased [Recovered/Resolved]
  - Neonatal cardiac failure [Recovered/Resolved]
  - Off label use [Unknown]
  - Maternal exposure during pregnancy [Unknown]
  - Product use issue [Unknown]
